FAERS Safety Report 19867839 (Version 1)
Quarter: 2021Q3

REPORT INFORMATION
  Report Type: Spontaneous
  Country: US (occurrence: US)
  Receive Date: 20210922
  Receipt Date: 20210922
  Transmission Date: 20211014
  Serious: No
  Sender: FDA-Public Use
  Company Number: US-PFIZER INC-202100964026

PATIENT

DRUGS (1)
  1. DEPO?PROVERA [Suspect]
     Active Substance: MEDROXYPROGESTERONE ACETATE
     Dosage: UNK (104 MG IN 0.65 ML)

REACTIONS (4)
  - Wrong technique in device usage process [Unknown]
  - Syringe issue [Unknown]
  - Needle issue [Unknown]
  - Product administration error [Unknown]
